FAERS Safety Report 8901867 (Version 1)
Quarter: 2012Q4

REPORT INFORMATION
  Report Type: Spontaneous
  Country: US (occurrence: None)
  Receive Date: 20121109
  Receipt Date: 20121109
  Transmission Date: 20130627
  Serious: Yes (Hospitalization)
  Sender: FDA-Public Use
  Company Number: None

PATIENT
  Age: 49 Year
  Sex: Female
  Weight: 72.58 kg

DRUGS (1)
  1. PHENYTOIN [Suspect]
     Indication: SEIZURE
     Route: 048
     Dates: start: 20101111, end: 20121107

REACTIONS (1)
  - Convulsion [None]
